FAERS Safety Report 5026700-0 (Version None)
Quarter: 2006Q2

REPORT INFORMATION
  Report Type: 
  Country: None (occurrence: None)
  Receive Date: 20060608
  Receipt Date: 20060530
  Transmission Date: 20061013
  Serious: Yes (Life-Threatening, Hospitalization)
  Sender: FDA-Public Use
  Company Number: 2006070845

PATIENT
  Age: 59 Year
  Sex: Female

DRUGS (4)
  1. LYRICA [Suspect]
     Indication: MULTIPLE SCLEROSIS
     Dosage: (75 MG), ORAL
     Route: 048
     Dates: start: 20051201, end: 20060418
  2. OLANZAPINE [Concomitant]
  3. FLUOXETINE [Concomitant]
  4. PREMARIN [Concomitant]

REACTIONS (8)
  - ABNORMAL BEHAVIOUR [None]
  - APPARENT LIFE THREATENING EVENT [None]
  - DEPRESSION [None]
  - DIFFICULTY IN WALKING [None]
  - OVERDOSE [None]
  - SOCIAL AVOIDANT BEHAVIOUR [None]
  - SPEECH DISORDER [None]
  - WEIGHT DECREASED [None]
